FAERS Safety Report 16345277 (Version 2)
Quarter: 2019Q4

REPORT INFORMATION
  Report Type: Report from Study
  Country: None (occurrence: BR)
  Receive Date: 20190523
  Receipt Date: 20191001
  Transmission Date: 20200122
  Serious: Yes (Hospitalization, Other)
  Sender: FDA-Public Use
  Company Number: BR-ABBVIE-19K-020-2788371-00

PATIENT
  Age: 55 Year
  Sex: Female
  Weight: 95 kg

DRUGS (14)
  1. HUMIRA [Suspect]
     Active Substance: ADALIMUMAB
     Dosage: LOADING DOSE 15 DAYS AFTER WEEK 0
     Route: 058
     Dates: start: 20180619, end: 20180619
  2. PURAN [Concomitant]
     Active Substance: LEVOTHYROXINE SODIUM
     Indication: THYROID DISORDER
     Route: 048
     Dates: start: 1989
  3. CLONAZEPAM. [Concomitant]
     Active Substance: CLONAZEPAM
     Indication: BLOOD PRESSURE ABNORMAL
  4. CLOPIDOGREL [Concomitant]
     Active Substance: CLOPIDOGREL BISULFATE
     Indication: BLOOD PRESSURE ABNORMAL
  5. MACRODANTIN [Concomitant]
     Active Substance: NITROFURANTOIN
     Indication: BLOOD PRESSURE ABNORMAL
  6. SIMVASTATIN. [Concomitant]
     Active Substance: SIMVASTATIN
     Indication: BLOOD CHOLESTEROL INCREASED
     Route: 048
     Dates: start: 2017, end: 201811
  7. TRIDIL [Concomitant]
     Active Substance: NITROGLYCERIN
     Indication: BLOOD PRESSURE ABNORMAL
  8. ANTIDIN [Concomitant]
     Indication: BLOOD PRESSURE ABNORMAL
  9. HUMIRA [Suspect]
     Active Substance: ADALIMUMAB
     Route: 058
     Dates: end: 2019
  10. LOSARTAN. [Concomitant]
     Active Substance: LOSARTAN
     Indication: BLOOD PRESSURE ABNORMAL
     Route: 048
  11. ATORVASTATIN [Concomitant]
     Active Substance: ATORVASTATIN
     Indication: BLOOD TRIGLYCERIDES INCREASED
  12. SIMVASTATIN. [Concomitant]
     Active Substance: SIMVASTATIN
     Indication: BLOOD TRIGLYCERIDES INCREASED
  13. ATORVASTATIN [Concomitant]
     Active Substance: ATORVASTATIN
     Indication: BLOOD CHOLESTEROL INCREASED
     Route: 048
     Dates: start: 201811
  14. HUMIRA [Suspect]
     Active Substance: ADALIMUMAB
     Indication: PSORIASIS
     Dosage: LOADING DOSE WEEK 0
     Route: 058
     Dates: start: 201805, end: 201805

REACTIONS (8)
  - Coronary artery occlusion [Recovering/Resolving]
  - Malaise [Unknown]
  - Dysgeusia [Recovered/Resolved]
  - Gastritis [Unknown]
  - Obstruction [Unknown]
  - Myocardial infarction [Recovered/Resolved]
  - Heart injury [Unknown]
  - Enzyme level increased [Unknown]

NARRATIVE: CASE EVENT DATE: 20190503
